FAERS Safety Report 11179583 (Version 2)
Quarter: 2015Q2

REPORT INFORMATION
  Report Type: Report from Study
  Country: ES (occurrence: ES)
  Receive Date: 20150611
  Receipt Date: 20150622
  Transmission Date: 20150821
  Serious: Yes (Other)
  Sender: FDA-Public Use
  Company Number: ES-ROCHE-1588778

PATIENT
  Age: 75 Year
  Sex: Female
  Weight: 83.3 kg

DRUGS (8)
  1. 5-FU [Suspect]
     Active Substance: FLUOROURACIL
     Dosage: MOST RECENT DOSE ON 26/MAY/2015?DOSE: 645MG
     Route: 040
     Dates: start: 20150216
  2. TELMISARTAN. [Concomitant]
     Active Substance: TELMISARTAN
     Route: 065
     Dates: start: 2005
  3. ADIRO [Concomitant]
     Active Substance: ASPIRIN
     Route: 065
     Dates: start: 201501, end: 20150603
  4. OXALIPLATIN. [Suspect]
     Active Substance: OXALIPLATIN
     Indication: COLORECTAL CANCER METASTATIC
     Dosage: MOST RECENT DOSE ON 26/MAY/2015
     Route: 042
     Dates: start: 20150216
  5. BEVACIZUMAB [Suspect]
     Active Substance: BEVACIZUMAB
     Indication: COLORECTAL CANCER METASTATIC
     Dosage: MOST RECENT DOSE ON 26/MAY/2015
     Route: 042
     Dates: start: 20150216
  6. 5-FU [Suspect]
     Active Substance: FLUOROURACIL
     Indication: COLORECTAL CANCER METASTATIC
     Dosage: MOST RECENT DOSE ON 26/MAY/2015?DOSE: 3875MG
     Route: 042
     Dates: start: 20150216
  7. METFORMIN [Concomitant]
     Active Substance: METFORMIN HYDROCHLORIDE
     Route: 065
     Dates: start: 2009
  8. FOLINIC ACID [Suspect]
     Active Substance: LEUCOVORIN
     Indication: COLORECTAL CANCER METASTATIC
     Dosage: THE LAST DOSE PRIOR TO THE ATRIAL FIBRILLATION WAS ADMINISTERED ON 26/MAY/2015.
     Route: 065
     Dates: start: 20150216

REACTIONS (1)
  - Atrial fibrillation [Recovered/Resolved]

NARRATIVE: CASE EVENT DATE: 20150602
